FAERS Safety Report 8680023 (Version 2)
Quarter: 2013Q1

REPORT INFORMATION
  Report Type: Spontaneous
  Country: US (occurrence: None)
  Receive Date: 20120706
  Receipt Date: 20130219
  Transmission Date: 20140127
  Serious: Yes (Hospitalization, Other)
  Sender: FDA-Public Use
  Company Number: DSU-2012-05225

PATIENT
  Age: 58 Year
  Sex: Male

DRUGS (5)
  1. BENICAR [Suspect]
     Route: 048
     Dates: start: 200907, end: 20100626
  2. ZOLOFT (SERTRALINE) (SERTRALINE) [Concomitant]
  3. PRILOSEC (OMEPRAZOLE) (OMEPRAZOLE) [Concomitant]
  4. ULTRAM (TRAMADOL HYDROCHLORIDE) (TRAMADOL HYDROCHLORIDE) [Concomitant]
  5. TRAZODONE (TRAZODONE) (TRAZODONE) [Concomitant]

REACTIONS (5)
  - WEIGHT DECREASED [None]
  - GASTRITIS [None]
  - COLITIS [None]
  - DIARRHOEA [None]
  - MALABSORPTION [None]
